FAERS Safety Report 21194079 (Version 1)
Quarter: 2022Q3

REPORT INFORMATION
  Report Type: Spontaneous
  Country: US (occurrence: US)
  Receive Date: 20220810
  Receipt Date: 20220810
  Transmission Date: 20221026
  Serious: No
  Sender: FDA-Public Use
  Company Number: US-BRISTOL-MYERS SQUIBB COMPANY-2022-086360

PATIENT
  Age: 45 Year
  Sex: Female
  Weight: 135 kg

DRUGS (17)
  1. YERVOY [Suspect]
     Active Substance: IPILIMUMAB
     Indication: Metastases to abdominal cavity
     Dosage: STRENGTH AND PRESENTATION OF THE AE : YERVOY 6 50MG VIALS,  OPDIVO  2, 240 MG VIALS
     Route: 042
  2. YERVOY [Suspect]
     Active Substance: IPILIMUMAB
     Indication: Neoplasm malignant
  3. YERVOY [Suspect]
     Active Substance: IPILIMUMAB
     Indication: Metastasis
  4. OPDIVO [Suspect]
     Active Substance: NIVOLUMAB
     Indication: Metastases to abdominal cavity
     Dosage: STRENGTH AND PRESENTATION OF THE AE : YERVOY 6 50MG VIALS,  OPDIVO  2, 240 MG VIALS
     Route: 042
  5. OPDIVO [Suspect]
     Active Substance: NIVOLUMAB
     Indication: Neoplasm malignant
  6. OPDIVO [Suspect]
     Active Substance: NIVOLUMAB
     Indication: Metastasis
  7. IRBESARTAN [Concomitant]
     Active Substance: IRBESARTAN
     Indication: Product used for unknown indication
     Route: 065
  8. ALBUTEROL [Concomitant]
     Active Substance: ALBUTEROL
     Indication: Product used for unknown indication
     Route: 065
  9. ALPRAZOLAM [Concomitant]
     Active Substance: ALPRAZOLAM
     Indication: Product used for unknown indication
     Route: 065
  10. GABAPENTIN [Concomitant]
     Active Substance: GABAPENTIN
     Indication: Product used for unknown indication
     Route: 065
  11. LEVOTHYROXINE [Concomitant]
     Active Substance: LEVOTHYROXINE
     Indication: Product used for unknown indication
     Route: 065
  12. METHOCARBAMOL [Concomitant]
     Active Substance: METHOCARBAMOL
     Indication: Product used for unknown indication
     Route: 065
  13. TRAZODONE [Concomitant]
     Active Substance: TRAZODONE HYDROCHLORIDE
     Indication: Product used for unknown indication
     Route: 065
  14. BUSPIRONE [Concomitant]
     Active Substance: BUSPIRONE HYDROCHLORIDE
     Indication: Product used for unknown indication
     Route: 065
  15. IBANDRONATE SODIUM [Concomitant]
     Active Substance: IBANDRONATE SODIUM
     Indication: Product used for unknown indication
     Route: 065
  16. MONTELUKAST [Concomitant]
     Active Substance: MONTELUKAST SODIUM
     Indication: Product used for unknown indication
     Route: 065
  17. PROCHLORPERAZINE [Concomitant]
     Active Substance: PROCHLORPERAZINE
     Indication: Product used for unknown indication
     Route: 065

REACTIONS (1)
  - Diarrhoea [Unknown]

NARRATIVE: CASE EVENT DATE: 20220513
